FAERS Safety Report 11624431 (Version 3)
Quarter: 2017Q2

REPORT INFORMATION
  Report Type: Report from Study
  Country: US (occurrence: US)
  Receive Date: 20151013
  Receipt Date: 20170519
  Transmission Date: 20170829
  Serious: Yes (Hospitalization, Other)
  Sender: FDA-Public Use
  Company Number: US-ROCHE-1616059

PATIENT
  Age: 28 Year
  Sex: Female
  Weight: 118.96 kg

DRUGS (8)
  1. SYNTHROID [Concomitant]
     Active Substance: LEVOTHYROXINE SODIUM
     Route: 048
  2. NUTROPIN AQ [Suspect]
     Active Substance: SOMATROPIN
     Indication: HYPOPITUITARISM
  3. VYVANSE [Concomitant]
     Active Substance: LISDEXAMFETAMINE DIMESYLATE
     Route: 048
  4. FLEXERIL [Concomitant]
     Active Substance: CYCLOBENZAPRINE HYDROCHLORIDE
     Route: 048
  5. NUTROPIN AQ [Suspect]
     Active Substance: SOMATROPIN
     Indication: GROWTH RETARDATION
     Route: 058
     Dates: start: 20150610
  6. NAPROSYN [Concomitant]
     Active Substance: NAPROXEN
     Route: 048
  7. NUTROPIN AQ [Suspect]
     Active Substance: SOMATROPIN
     Indication: DWARFISM
     Route: 058
     Dates: start: 20150604
  8. PROGESTERONE. [Concomitant]
     Active Substance: PROGESTERONE
     Route: 065

REACTIONS (27)
  - Upper respiratory tract infection [Unknown]
  - Gastroenteritis norovirus [Unknown]
  - Muscle spasms [Not Recovered/Not Resolved]
  - Headache [Recovering/Resolving]
  - Hot flush [Not Recovered/Not Resolved]
  - Hair growth abnormal [Not Recovered/Not Resolved]
  - Blood testosterone increased [Unknown]
  - Respiratory tract infection [Unknown]
  - Obesity [Not Recovered/Not Resolved]
  - Amenorrhoea [Not Recovered/Not Resolved]
  - Feeling abnormal [Recovered/Resolved]
  - Acne [Not Recovered/Not Resolved]
  - Glycosylated haemoglobin increased [Unknown]
  - Swelling [Unknown]
  - Musculoskeletal stiffness [Unknown]
  - Diverticulitis [Unknown]
  - Arthralgia [Not Recovered/Not Resolved]
  - Depressed mood [Unknown]
  - Memory impairment [Unknown]
  - Urinary tract infection [Unknown]
  - Deafness unilateral [Unknown]
  - Asthma [Unknown]
  - Dizziness [Not Recovered/Not Resolved]
  - Libido decreased [Not Recovered/Not Resolved]
  - Weight decreased [Not Recovered/Not Resolved]
  - Injection site haemorrhage [Not Recovered/Not Resolved]
  - Fatigue [Not Recovered/Not Resolved]

NARRATIVE: CASE EVENT DATE: 201605
